FAERS Safety Report 9420054 (Version 4)
Quarter: 2014Q3

REPORT INFORMATION
  Report Type: Spontaneous
  Country: FR (occurrence: FR)
  Receive Date: 20130725
  Receipt Date: 20140813
  Transmission Date: 20150326
  Serious: Yes (Hospitalization, Other)
  Sender: FDA-Public Use
  Company Number: FR-ASTRAZENECA-2013SE55762

PATIENT
  Age: 59 Year
  Sex: Male
  Weight: 85 kg

DRUGS (16)
  1. CAPRELSA [Interacting]
     Active Substance: VANDETANIB
     Indication: THYROID CANCER METASTATIC
     Route: 048
     Dates: start: 20130909
  2. LOVENOX [Concomitant]
     Active Substance: ENOXAPARIN SODIUM
  3. DIFLUCAN [Concomitant]
     Active Substance: FLUCONAZOLE
  4. DEROXAT [Interacting]
     Active Substance: PAROXETINE HYDROCHLORIDE
     Indication: DEPRESSION
     Route: 048
     Dates: start: 201306, end: 201307
  5. RISPERDAL [Interacting]
     Active Substance: RISPERIDONE
     Route: 048
  6. EFFEXOR [Concomitant]
     Active Substance: VENLAFAXINE HYDROCHLORIDE
     Route: 048
  7. THERALENE [Concomitant]
     Active Substance: TRIMEPRAZINE
     Dosage: DROPS EVERY EVENING
     Route: 048
  8. ABILIFY [Suspect]
     Active Substance: ARIPIPRAZOLE
     Route: 048
     Dates: start: 2014
  9. DEPAKOTE [Concomitant]
     Active Substance: DIVALPROEX SODIUM
  10. CAPRELSA [Suspect]
     Active Substance: VANDETANIB
     Indication: THYROID CANCER METASTATIC
     Route: 048
     Dates: start: 20120928, end: 201307
  11. PARIET [Concomitant]
     Active Substance: RABEPRAZOLE SODIUM
  12. VENTOLINE [Concomitant]
     Active Substance: ALBUTEROL
  13. DECTANCYL [Concomitant]
     Active Substance: DEXAMETHASONE
  14. IMOVANE [Concomitant]
     Active Substance: ZOPICLONE
  15. EFFEXOR [Concomitant]
     Active Substance: VENLAFAXINE HYDROCHLORIDE
     Route: 048
  16. RISPERDAL [Interacting]
     Active Substance: RISPERIDONE
     Route: 048

REACTIONS (10)
  - Generalised tonic-clonic seizure [Not Recovered/Not Resolved]
  - Depressed mood [Not Recovered/Not Resolved]
  - Major depression [Not Recovered/Not Resolved]
  - Disturbance in attention [Unknown]
  - Fall [Recovered/Resolved]
  - Drug interaction [Unknown]
  - Disorientation [Unknown]
  - Somnolence [Unknown]
  - Myocarditis [Unknown]
  - Apathy [Not Recovered/Not Resolved]

NARRATIVE: CASE EVENT DATE: 2013
